FAERS Safety Report 10045363 (Version 1)
Quarter: 2014Q1

REPORT INFORMATION
  Report Type: Spontaneous
  Country: US (occurrence: None)
  Receive Date: 20140306
  Receipt Date: 20140306
  Transmission Date: 20141002
  Serious: Yes (Hospitalization, Other)
  Sender: FDA-Public Use
  Company Number: 163-21880-13050076

PATIENT
  Age: 78 Year
  Sex: Female

DRUGS (11)
  1. REVLIMID (LENALIDOMIDE) (5 MILLIGRAM, CAPSULES) [Suspect]
     Indication: MYELODYSPLASTIC SYNDROME
     Dosage: (TEMPORARILY INTERRUPTED) 21 IN 28 D
     Route: 048
     Dates: start: 20130408
  2. RESTORIL (TEMAZEPAM) [Concomitant]
  3. MYCOLOG-II (NYSTADERMAL) [Concomitant]
  4. ZOLOFT (SERTRALINE HYDROCHLORIDE) [Concomitant]
  5. LISINOPRIL [Concomitant]
  6. LOPRESSOR (METOPROLOL TARTRATE) [Concomitant]
  7. PRILOSEC (OMEPRAZOLE) [Concomitant]
  8. ASPIRIN [Concomitant]
  9. ROBAXIN (METHOCARBAMOL) [Concomitant]
  10. MOTRIN (IBUPROFEN) [Concomitant]
  11. TYLENOL (PARACETAMOL) [Concomitant]

REACTIONS (4)
  - Cellulitis [None]
  - Pancytopenia [None]
  - Renal failure [None]
  - White blood cell count decreased [None]
